FAERS Safety Report 14579361 (Version 1)
Quarter: 2018Q1

REPORT INFORMATION
  Report Type: Spontaneous
  Country: US (occurrence: US)
  Receive Date: 20180227
  Receipt Date: 20180227
  Transmission Date: 20180509
  Serious: No
  Sender: FDA-Public Use
  Company Number: US-SA-2018SA041897

PATIENT
  Age: 63 Year
  Sex: Male

DRUGS (4)
  1. SOLOSTAR [Suspect]
     Active Substance: DEVICE
     Indication: TYPE 2 DIABETES MELLITUS
     Dates: start: 2017
  2. NOVOLOG [Concomitant]
     Active Substance: INSULIN ASPART
     Route: 065
  3. SOLIQUA 100/33 [Suspect]
     Active Substance: INSULIN GLARGINE\LIXISENATIDE
     Indication: TYPE 2 DIABETES MELLITUS
     Dosage: DOSE:15 UNIT(S)
     Route: 065
     Dates: start: 2017
  4. LANTUS [Concomitant]
     Active Substance: INSULIN GLARGINE
     Route: 065

REACTIONS (2)
  - Blood glucose increased [Unknown]
  - Device issue [Unknown]
